FAERS Safety Report 14354900 (Version 1)
Quarter: 2018Q1

REPORT INFORMATION
  Report Type: Spontaneous
  Country: IT (occurrence: IT)
  Receive Date: 20180105
  Receipt Date: 20180105
  Transmission Date: 20180509
  Serious: Yes (Death, Other)
  Sender: FDA-Public Use
  Company Number: IT-AUROBINDO-AUR-APL-2018-000228

PATIENT
  Age: 72 Year
  Sex: Female

DRUGS (9)
  1. LENALIDOMIDE [Concomitant]
     Active Substance: LENALIDOMIDE
     Indication: ATRIAL FIBRILLATION
     Dosage: ()
     Route: 065
  2. LANSOPRAZOLE. [Concomitant]
     Active Substance: LANSOPRAZOLE
     Indication: PRODUCT USED FOR UNKNOWN INDICATION
     Dosage: ()
     Route: 065
  3. COUMADIN [Interacting]
     Active Substance: WARFARIN SODIUM
     Indication: ATRIAL FIBRILLATION
     Dosage: DOSE: 1UNK DOSE:1 UNIT(S) () ; AS NECESSARY
     Route: 048
     Dates: start: 20170101, end: 20170925
  4. SOLDESAM [Concomitant]
     Active Substance: DEXAMETHASONE
     Indication: PRODUCT USED FOR UNKNOWN INDICATION
     Dosage: ()
     Route: 065
  5. LASIX [Concomitant]
     Active Substance: FUROSEMIDE
     Indication: PRODUCT USED FOR UNKNOWN INDICATION
     Dosage: ()
     Route: 065
  6. LEVOFLOXACIN FILMCOATED TABLET [Suspect]
     Active Substance: LEVOFLOXACIN
     Indication: PRODUCT USED FOR UNKNOWN INDICATION
     Dosage: DOSE: 1UNK DOSE:1 UNIT(S) (1)
     Route: 048
     Dates: start: 20170915, end: 20170920
  7. ZOVIRAX [Concomitant]
     Active Substance: ACYCLOVIR
     Indication: PRODUCT USED FOR UNKNOWN INDICATION
     Dosage: ()
     Route: 065
  8. LOSARTAN. [Concomitant]
     Active Substance: LOSARTAN
     Indication: PRODUCT USED FOR UNKNOWN INDICATION
     Dosage: ()
     Route: 065
  9. LYRICA [Concomitant]
     Active Substance: PREGABALIN
     Indication: PRODUCT USED FOR UNKNOWN INDICATION
     Dosage: ()
     Route: 065

REACTIONS (10)
  - Eye disorder [Unknown]
  - Pallor [Fatal]
  - Agitation [Unknown]
  - Bradycardia [Fatal]
  - Cardio-respiratory arrest [Fatal]
  - Confusional state [Unknown]
  - Hypovolaemic shock [Fatal]
  - Haematemesis [Fatal]
  - Abdominal pain upper [Fatal]
  - Drug interaction [Unknown]

NARRATIVE: CASE EVENT DATE: 20170925
